FAERS Safety Report 5598866-5 (Version None)
Quarter: 2008Q1

REPORT INFORMATION
  Report Type: 
  Country: None (occurrence: None)
  Receive Date: 20080122
  Receipt Date: 20080114
  Transmission Date: 20080703
  Serious: Yes (Other)
  Sender: FDA-Public Use
  Company Number: US-BRISTOL-MYERS SQUIBB COMPANY-13949227

PATIENT

DRUGS (1)
  1. ATAZANAVIR SULFATE [Suspect]
     Indication: HIV INFECTION

REACTIONS (2)
  - BLOOD BILIRUBIN INCREASED [None]
  - GLUCOSE TOLERANCE TEST ABNORMAL [None]
